FAERS Safety Report 7955016-5 (Version None)
Quarter: 2011Q4

REPORT INFORMATION
  Report Type: 
  Country: None (occurrence: None)
  Receive Date: 20111202
  Receipt Date: 20111122
  Transmission Date: 20120403
  Serious: Yes (Hospitalization)
  Sender: FDA-Public Use
  Company Number: MW-ABBOTT-11P-100-0876680-00

PATIENT
  Sex: Female
  Weight: 49 kg

DRUGS (2)
  1. LOPINAVIR/RITONAVIR [Suspect]
     Indication: HIV INFECTION
     Dosage: 400/100MG TWICE A DAY
     Route: 048
     Dates: start: 20111102, end: 20111116
  2. LAMIVUDINE AND STAVUDINE [Concomitant]
     Indication: HIV INFECTION
     Dosage: 150/300MG TWICE A DAY
     Route: 048
     Dates: start: 20080811, end: 20111116

REACTIONS (1)
  - ABORTION INCOMPLETE [None]
